FAERS Safety Report 14476086 (Version 6)
Quarter: 2018Q3

REPORT INFORMATION
  Report Type: Spontaneous
  Country: DE (occurrence: DE)
  Receive Date: 20180201
  Receipt Date: 20180702
  Transmission Date: 20181010
  Serious: Yes (Death, Hospitalization, Congenital Anomaly, Other)
  Sender: FDA-Public Use
  Company Number: DE-BAUSCH-BL-2017-033277

PATIENT
  Age: 78 Year
  Sex: Male

DRUGS (50)
  1. DEXTROMETHORPHAN HYDROBROMIDE. [Suspect]
     Active Substance: DEXTROMETHORPHAN HYDROBROMIDE
     Indication: DELIRIUM
     Route: 065
     Dates: start: 20170101
  2. FLUPENTIXOL [Suspect]
     Active Substance: FLUPENTIXOL
     Indication: PNEUMONIA
     Dosage: DOSE RAISED TO 20 MG/DAY
     Route: 048
  3. LORAZEPAM. [Suspect]
     Active Substance: LORAZEPAM
     Indication: DELIRIUM
     Dosage: 1 DAY
     Route: 065
     Dates: start: 2016
  4. QUETIAPINE FUMARATE. [Suspect]
     Active Substance: QUETIAPINE FUMARATE
     Indication: DELIRIUM
     Route: 048
     Dates: start: 20160101
  5. QUETIAPINE FUMARATE. [Suspect]
     Active Substance: QUETIAPINE FUMARATE
     Route: 065
     Dates: start: 2016
  6. ZUCLOPENTHIXOL [Concomitant]
     Active Substance: ZUCLOPENTHIXOL
     Indication: DEMENTIA WITH LEWY BODIES
  7. AMPICILLIN/SULBACTAM [Suspect]
     Active Substance: AMPICILLIN SODIUM\SULBACTAM SODIUM
     Indication: PNEUMONIA
     Route: 065
     Dates: start: 201601
  8. QUETIAPINE. [Suspect]
     Active Substance: QUETIAPINE
     Indication: AGGRESSION
     Route: 065
  9. DIAZEPAM. [Concomitant]
     Active Substance: DIAZEPAM
     Indication: DEMENTIA WITH LEWY BODIES
  10. MIRTAZAPINE. [Concomitant]
     Active Substance: MIRTAZAPINE
     Indication: DEMENTIA WITH LEWY BODIES
  11. CARBAMAZEPINE. [Concomitant]
     Active Substance: CARBAMAZEPINE
     Indication: DEMENTIA WITH LEWY BODIES
     Route: 065
  12. DONEPEZIL. [Concomitant]
     Active Substance: DONEPEZIL
     Indication: DELIRIUM
  13. FLUPENTIXOL [Suspect]
     Active Substance: FLUPENTIXOL
     Indication: DEMENTIA WITH LEWY BODIES
     Dosage: DAILY DOSE UNKNOWN
     Route: 048
  14. DEXTROMETHORPHAN [Suspect]
     Active Substance: DEXTROMETHORPHAN
     Indication: AGITATION
     Route: 065
  15. DEXTROMETHORPHAN [Suspect]
     Active Substance: DEXTROMETHORPHAN
     Indication: AGGRESSION
     Route: 065
  16. RIVASTIGMINE. [Concomitant]
     Active Substance: RIVASTIGMINE
     Indication: DELIRIUM
  17. DONEPEZIL. [Concomitant]
     Active Substance: DONEPEZIL
     Indication: DEMENTIA WITH LEWY BODIES
  18. QUETIAPINE FUMARATE. [Suspect]
     Active Substance: QUETIAPINE FUMARATE
     Route: 048
     Dates: start: 20170101
  19. PAROXETINE. [Suspect]
     Active Substance: PAROXETINE
     Indication: DELIRIUM
     Dosage: 10 MG, QD
     Route: 065
     Dates: start: 20170101
  20. PAROXETINE. [Suspect]
     Active Substance: PAROXETINE
     Indication: AGGRESSION
  21. DRONABINOL. [Suspect]
     Active Substance: DRONABINOL
     Indication: DELIRIUM
     Route: 065
     Dates: start: 20160101
  22. DRONABINOL. [Suspect]
     Active Substance: DRONABINOL
     Route: 065
  23. DRONABINOL. [Suspect]
     Active Substance: DRONABINOL
     Dosage: 2.5 MG, QD
     Route: 065
  24. SPIRIVA [Suspect]
     Active Substance: TIOTROPIUM BROMIDE MONOHYDRATE
     Indication: PNEUMONIA
     Route: 065
  25. FLUPENTIXOL [Suspect]
     Active Substance: FLUPENTIXOL
     Indication: POOR QUALITY SLEEP
  26. FORMOTEROL FUMARATE [Suspect]
     Active Substance: FORMOTEROL FUMARATE
     Indication: PNEUMONIA
     Route: 065
     Dates: start: 20160101
  27. QUETIAPINE. [Suspect]
     Active Substance: QUETIAPINE
     Dosage: AS HIGH AS TOLERATED
     Route: 065
  28. QUETIAPINE. [Concomitant]
     Active Substance: QUETIAPINE
     Indication: DEMENTIA WITH LEWY BODIES
  29. PIPAMPERONE [Concomitant]
     Active Substance: PIPAMPERONE
     Indication: DEMENTIA WITH LEWY BODIES
  30. PAROXETINE. [Suspect]
     Active Substance: PAROXETINE
     Indication: AGITATION
     Route: 065
  31. DEXTROMETHORPHAN HYDROBROMIDE. [Suspect]
     Active Substance: DEXTROMETHORPHAN HYDROBROMIDE
     Indication: AGGRESSION
     Dosage: DOSE INCREASED, DIVIDED INTO 2 DOSAGES
     Route: 065
  32. TRAZODONE [Concomitant]
     Active Substance: TRAZODONE HYDROCHLORIDE
     Indication: DEMENTIA WITH LEWY BODIES
  33. DONEPEZIL. [Concomitant]
     Active Substance: DONEPEZIL
     Indication: AGGRESSION
  34. LORAZEPAM. [Suspect]
     Active Substance: LORAZEPAM
     Indication: DEMENTIA WITH LEWY BODIES
     Route: 065
     Dates: start: 20160101
  35. DRONABINOL. [Suspect]
     Active Substance: DRONABINOL
     Indication: AGGRESSION
     Dosage: DOSAGE RANGING FROM 2.5?15 MG/D; LATER INCREASED
     Route: 065
  36. DRONABINOL. [Suspect]
     Active Substance: DRONABINOL
     Dosage: 15 MG, QD
     Route: 065
     Dates: start: 20160101
  37. FLUPENTIXOL [Suspect]
     Active Substance: FLUPENTIXOL
     Indication: AGGRESSION
     Dosage: AS HIGH AS TOLERATED
     Route: 048
  38. FLUPENTIXOL [Suspect]
     Active Substance: FLUPENTIXOL
     Indication: HANGOVER
  39. DEXTROMETHORPHAN [Suspect]
     Active Substance: DEXTROMETHORPHAN
     Indication: DELIRIUM
     Dosage: 40 MG, DIVIDED INTO 2 DOSAGES
     Route: 065
  40. RIVASTIGMINE. [Concomitant]
     Active Substance: RIVASTIGMINE
     Indication: DEMENTIA WITH LEWY BODIES
     Dosage: DAILY
     Route: 065
  41. AMISULPRIDE [Concomitant]
     Active Substance: AMISULPRIDE
     Indication: DEMENTIA WITH LEWY BODIES
  42. BENPERIDOL [Concomitant]
     Active Substance: BENPERIDOL
     Indication: DEMENTIA WITH LEWY BODIES
  43. ARIPIPRAZOLE. [Concomitant]
     Active Substance: ARIPIPRAZOLE
     Indication: DEMENTIA WITH LEWY BODIES
  44. QUETIAPINE FUMARATE. [Suspect]
     Active Substance: QUETIAPINE FUMARATE
     Indication: DEMENTIA WITH LEWY BODIES
     Route: 048
     Dates: start: 20160101
  45. QUETIAPINE FUMARATE. [Suspect]
     Active Substance: QUETIAPINE FUMARATE
     Dosage: DOSE INCREASED
     Route: 065
  46. DEXTROMETHORPHAN HYDROBROMIDE. [Suspect]
     Active Substance: DEXTROMETHORPHAN HYDROBROMIDE
     Indication: AGITATION
     Route: 065
  47. QUETIAPINE. [Suspect]
     Active Substance: QUETIAPINE
     Dosage: 100 MG, QD
     Route: 065
  48. RIVASTIGMINE. [Concomitant]
     Active Substance: RIVASTIGMINE
     Indication: AGGRESSION
  49. RISPERIDONE. [Concomitant]
     Active Substance: RISPERIDONE
     Indication: DEMENTIA WITH LEWY BODIES
  50. CLOZAPINE. [Concomitant]
     Active Substance: CLOZAPINE
     Indication: DEMENTIA WITH LEWY BODIES

REACTIONS (13)
  - Aggression [Fatal]
  - Paradoxical drug reaction [Fatal]
  - Completed suicide [Fatal]
  - Off label use [Fatal]
  - Condition aggravated [Fatal]
  - Rebound effect [Fatal]
  - Delirium [Fatal]
  - Sleep disorder [Fatal]
  - Hangover [Fatal]
  - Paranoia [Fatal]
  - Fatigue [Fatal]
  - Withdrawal syndrome [Fatal]
  - Agitation [Fatal]

NARRATIVE: CASE EVENT DATE: 2016
